FAERS Safety Report 5476898-5 (Version None)
Quarter: 2007Q4

REPORT INFORMATION
  Report Type: 
  Country: None (occurrence: None)
  Receive Date: 20071004
  Receipt Date: 20070926
  Transmission Date: 20080405
  Serious: Yes (Other)
  Sender: FDA-Public Use
  Company Number: PHBS2007JP14691

PATIENT
  Age: 60 Year
  Sex: Male

DRUGS (3)
  1. NORVASC [Concomitant]
     Dosage: 5 MG, UNK
     Route: 048
     Dates: start: 20070219
  2. ADALAT [Concomitant]
     Dosage: 40 MG, UNK
     Route: 048
     Dates: start: 20070815
  3. DIOVAN [Suspect]
     Indication: HYPERTENSION
     Dosage: 80 MG, QD
     Route: 048
     Dates: start: 20060828

REACTIONS (2)
  - BLOOD CREATINE PHOSPHOKINASE INCREASED [None]
  - LISTLESS [None]
